FAERS Safety Report 9570986 (Version 1)
Quarter: 2013Q3

REPORT INFORMATION
  Report Type: Spontaneous
  Country: US (occurrence: None)
  Receive Date: 20130927
  Receipt Date: 20130927
  Transmission Date: 20140515
  Serious: Yes (Life-Threatening, Hospitalization)
  Sender: FDA-Public Use
  Company Number: None

PATIENT
  Age: 84 Year
  Sex: Male
  Weight: 100.5 kg

DRUGS (2)
  1. EXJADE [Suspect]
     Indication: ANAEMIA
     Route: 048
     Dates: start: 20130823
  2. EXJADE [Suspect]
     Indication: SIDEROBLASTIC ANAEMIA
     Route: 048
     Dates: start: 20130823

REACTIONS (10)
  - Asthenia [None]
  - Rhinorrhoea [None]
  - Pyrexia [None]
  - Acute hepatic failure [None]
  - Renal failure acute [None]
  - Hepatitis [None]
  - Thrombocytopenia [None]
  - Hepatic encephalopathy [None]
  - Metabolic acidosis [None]
  - Fanconi syndrome [None]
